FAERS Safety Report 6289520-5 (Version None)
Quarter: 2009Q3

REPORT INFORMATION
  Report Type: 
  Country: None (occurrence: None)
  Receive Date: 20090730
  Receipt Date: 20090624
  Transmission Date: 20100115
  Serious: No
  Sender: FDA-Public Use
  Company Number: US-BAYER-200924895NA

PATIENT
  Sex: Female

DRUGS (2)
  1. MIRENA [Suspect]
     Indication: DRUG USE FOR UNKNOWN INDICATION
     Route: 015
     Dates: start: 20090615
  2. NORETHINDRONE AND ETHINYL ESTRADIOL [Concomitant]

REACTIONS (2)
  - OEDEMA PERIPHERAL [None]
  - VAGINAL HAEMORRHAGE [None]
